FAERS Safety Report 10034998 (Version 1)
Quarter: 2014Q1

REPORT INFORMATION
  Report Type: Report from Study
  Country: US (occurrence: US)
  Receive Date: 20140325
  Receipt Date: 20140325
  Transmission Date: 20141002
  Serious: Yes (Other)
  Sender: FDA-Public Use
  Company Number: US-ABBVIE-14P-163-1213718-00

PATIENT
  Age: 38 Year
  Sex: Female

DRUGS (4)
  1. HUMIRA [Suspect]
     Indication: RHEUMATOID ARTHRITIS
     Dates: start: 201204
  2. HUMIRA [Suspect]
  3. BYSTOLIC [Concomitant]
     Indication: HYPERTENSION
  4. REQUIPS [Concomitant]
     Indication: RESTLESS LEGS SYNDROME
     Dosage: UP TO FOUR TIMES DAILY

REACTIONS (3)
  - Vaginal haemorrhage [Recovered/Resolved]
  - Arthralgia [Unknown]
  - Restless legs syndrome [Unknown]
